FAERS Safety Report 18162217 (Version 1)
Quarter: 2020Q3

REPORT INFORMATION
  Report Type: Spontaneous
  Country: US (occurrence: US)
  Receive Date: 20200817
  Receipt Date: 20200817
  Transmission Date: 20201103
  Serious: No
  Sender: FDA-Public Use
  Company Number: None

PATIENT
  Age: 39 Year
  Sex: Female

DRUGS (1)
  1. OPSUMIT [Suspect]
     Active Substance: MACITENTAN
     Indication: PULMONARY ARTERIAL HYPERTENSION
     Route: 048
     Dates: start: 20190607

REACTIONS (4)
  - Diabetes mellitus [None]
  - Hyperglycaemia [None]
  - Vision blurred [None]
  - Confusional state [None]

NARRATIVE: CASE EVENT DATE: 20200731
